FAERS Safety Report 7781187-X (Version None)
Quarter: 2011Q3

REPORT INFORMATION
  Report Type: 
  Country: None (occurrence: None)
  Receive Date: 20110927
  Receipt Date: 20110923
  Transmission Date: 20111222
  Serious: Yes (Death, Other)
  Sender: FDA-Public Use
  Company Number: US-ABBOTT-11P-163-0836720-00

PATIENT
  Sex: Male
  Weight: 81 kg

DRUGS (6)
  1. HYDROCODONE [Suspect]
     Indication: PRODUCT USED FOR UNKNOWN INDICATION
  2. RANITIDINE [Concomitant]
     Indication: PRODUCT USED FOR UNKNOWN INDICATION
  3. LIPITOR [Concomitant]
     Indication: PRODUCT USED FOR UNKNOWN INDICATION
  4. LUPRON DEPOT [Suspect]
     Indication: PROSTATE CANCER
     Dosage: PATIENT RECEIVED 1ST DOSE ONLY
     Route: 030
     Dates: start: 20101105, end: 20101105
  5. SELIDIPINE [Concomitant]
     Indication: PRODUCT USED FOR UNKNOWN INDICATION
  6. FLOMAX [Concomitant]
     Indication: PRODUCT USED FOR UNKNOWN INDICATION

REACTIONS (6)
  - INTENTIONAL SELF-INJURY [None]
  - COMPLETED SUICIDE [None]
  - GUN SHOT WOUND [None]
  - DRUG ABUSE [None]
  - SUICIDAL IDEATION [None]
  - PROSTATE CANCER [None]
